FAERS Safety Report 24114104 (Version 1)
Quarter: 2024Q3

REPORT INFORMATION
  Report Type: Spontaneous
  Country: NL (occurrence: NL)
  Receive Date: 20240720
  Receipt Date: 20240720
  Transmission Date: 20241016
  Serious: Yes (Hospitalization, Other)
  Sender: AUROBINDO
  Company Number: NL-LRB-00981717

PATIENT
  Age: 23 Year
  Sex: Female
  Weight: 46 kg

DRUGS (2)
  1. LAMOTRIGINE [Suspect]
     Active Substance: LAMOTRIGINE
     Indication: Epilepsy
     Dosage: 100 MILLIGRAM, ONCE A DAY (1DD1)
     Route: 065
     Dates: start: 20200310, end: 20231122
  2. LACOSAMIDE [Concomitant]
     Active Substance: LACOSAMIDE
     Indication: Product used for unknown indication
     Dosage: 150 MILLIGRAM
     Route: 065

REACTIONS (3)
  - Pancytopenia [Recovered/Resolved]
  - Systemic lupus erythematosus [Recovered/Resolved]
  - Diffuse alopecia [Unknown]
